FAERS Safety Report 6241536-0 (Version None)
Quarter: 2009Q2

REPORT INFORMATION
  Report Type: 
  Country: None (occurrence: None)
  Receive Date: 20090623
  Receipt Date: 20040128
  Transmission Date: 20091009
  Serious: Yes (Life-Threatening, Hospitalization)
  Sender: FDA-Public Use
  Company Number: DE-ROCHE-357398

PATIENT
  Sex: Female

DRUGS (61)
  1. DACLIZUMAB [Suspect]
     Route: 042
     Dates: start: 20040120, end: 20040120
  2. DACLIZUMAB [Suspect]
     Route: 042
     Dates: start: 20040203, end: 20040316
  3. MYCOPHENOLATE MOFETIL [Suspect]
     Route: 048
     Dates: start: 20040120
  4. MYCOPHENOLATE MOFETIL [Suspect]
     Route: 048
     Dates: start: 20040121
  5. MYCOPHENOLATE MOFETIL [Suspect]
     Route: 048
     Dates: start: 20040331
  6. MYCOPHENOLATE MOFETIL [Suspect]
     Route: 048
     Dates: start: 20040407
  7. MYCOPHENOLATE MOFETIL [Suspect]
     Route: 048
     Dates: start: 20040420, end: 20040616
  8. MYCOPHENOLATE MOFETIL [Suspect]
     Route: 048
     Dates: start: 20050118
  9. TACROLIMUS [Suspect]
     Dosage: DRUG REPORTED: PROGRAF
     Route: 048
     Dates: start: 20040120
  10. TACROLIMUS [Suspect]
     Route: 048
     Dates: start: 20040121
  11. TACROLIMUS [Suspect]
     Route: 048
     Dates: start: 20040123
  12. TACROLIMUS [Suspect]
     Route: 048
     Dates: start: 20040125
  13. TACROLIMUS [Suspect]
     Route: 048
     Dates: start: 20040127
  14. TACROLIMUS [Suspect]
     Route: 048
     Dates: start: 20040128
  15. TACROLIMUS [Suspect]
     Route: 048
     Dates: start: 20040130
  16. TACROLIMUS [Suspect]
     Route: 048
     Dates: start: 20040131
  17. TACROLIMUS [Suspect]
     Route: 048
     Dates: start: 20040201
  18. TACROLIMUS [Suspect]
     Route: 048
     Dates: start: 20040203
  19. TACROLIMUS [Suspect]
     Route: 048
     Dates: start: 20040204
  20. TACROLIMUS [Suspect]
     Route: 048
     Dates: start: 20040210
  21. TACROLIMUS [Suspect]
     Route: 048
     Dates: start: 20040211
  22. TACROLIMUS [Suspect]
     Route: 048
     Dates: start: 20040217
  23. TACROLIMUS [Suspect]
     Route: 048
     Dates: start: 20040325
  24. TACROLIMUS [Suspect]
     Route: 048
     Dates: start: 20040420
  25. TACROLIMUS [Suspect]
     Route: 048
     Dates: start: 20040616
  26. TACROLIMUS [Suspect]
     Route: 048
     Dates: start: 20040621
  27. TACROLIMUS [Suspect]
     Route: 048
     Dates: start: 20040629
  28. TACROLIMUS [Suspect]
     Route: 048
     Dates: start: 20050414
  29. TACROLIMUS [Suspect]
     Route: 048
     Dates: start: 20051026
  30. TACROLIMUS [Suspect]
     Route: 048
     Dates: start: 20060126
  31. TACROLIMUS [Suspect]
     Route: 048
     Dates: start: 20060620
  32. TACROLIMUS [Suspect]
     Dosage: DRUG REPORTED: PROGRAF
     Route: 048
     Dates: start: 20040407
  33. DECORTIN H [Suspect]
     Route: 048
     Dates: start: 20040122
  34. DECORTIN H [Suspect]
     Route: 048
     Dates: start: 20040204
  35. DECORTIN H [Suspect]
     Route: 048
     Dates: start: 20040217
  36. DECORTIN H [Suspect]
     Route: 048
     Dates: start: 20040325
  37. SOLU-DECORTIN [Suspect]
     Route: 042
     Dates: start: 20040120
  38. SOLU-DECORTIN [Suspect]
     Route: 042
     Dates: start: 20040121, end: 20040122
  39. SOLU-DECORTIN [Suspect]
     Route: 042
     Dates: start: 20040123, end: 20040127
  40. ANTI-THYMOCYTE GLOBULIN NOS [Suspect]
     Indication: DRUG USE FOR UNKNOWN INDICATION
     Route: 042
     Dates: start: 20040123, end: 20040125
  41. ANTI-THYMOCYTE GLOBULIN NOS [Suspect]
     Route: 042
     Dates: start: 20040126, end: 20040127
  42. HEPARIN [Suspect]
     Indication: DRUG USE FOR UNKNOWN INDICATION
     Route: 042
     Dates: start: 20040122, end: 20040127
  43. AMOXYPEN [Concomitant]
     Route: 048
     Dates: start: 20040621, end: 20040626
  44. AMPHOTERICIN B [Concomitant]
     Dosage: ROUTE: SL
     Route: 050
     Dates: start: 20040121, end: 20040407
  45. BELOC ZOK MITE [Concomitant]
     Route: 048
     Dates: start: 20040226
  46. CEFUROXIME [Concomitant]
     Route: 042
     Dates: start: 20040127, end: 20040202
  47. CEFUROXIME [Concomitant]
     Route: 048
     Dates: start: 20061019
  48. CIPROBAY [Concomitant]
     Route: 048
     Dates: start: 20040330, end: 20040401
  49. CIPROBAY [Concomitant]
     Route: 048
     Dates: start: 20060126, end: 20060205
  50. METRONIDAZOLE HCL [Concomitant]
     Route: 048
     Dates: start: 20050608, end: 20050624
  51. COTRIM [Concomitant]
     Route: 048
     Dates: start: 20040126, end: 20040330
  52. CYMEVEN [Concomitant]
     Route: 042
     Dates: start: 20040120, end: 20040126
  53. CYNT [Concomitant]
     Dosage: DRUG REPORTED: CYNT 0.3
     Route: 048
     Dates: start: 20040325
  54. NORVASC [Concomitant]
     Route: 048
     Dates: start: 20040122, end: 20040129
  55. NORVASC [Concomitant]
     Route: 048
     Dates: start: 20040210
  56. NORVASC [Concomitant]
     Route: 048
     Dates: start: 20040217
  57. ROCEPHIN [Concomitant]
     Route: 042
     Dates: start: 20040120, end: 20040126
  58. VALCYTE [Concomitant]
     Route: 048
     Dates: start: 20040126
  59. VALCYTE [Concomitant]
     Route: 048
     Dates: start: 20040129
  60. VALCYTE [Concomitant]
     Route: 048
     Dates: start: 20040201, end: 20040420
  61. VALCYTE [Concomitant]
     Route: 048
     Dates: start: 20040616

REACTIONS (3)
  - CYTOMEGALOVIRUS GASTROINTESTINAL INFECTION [None]
  - HAEMORRHAGE SUBCUTANEOUS [None]
  - RENAL CYST [None]
